FAERS Safety Report 14402229 (Version 4)
Quarter: 2018Q2

REPORT INFORMATION
  Report Type: Spontaneous
  Country: FR (occurrence: FR)
  Receive Date: 20180117
  Receipt Date: 20180622
  Transmission Date: 20180711
  Serious: Yes (Disabling)
  Sender: FDA-Public Use
  Company Number: FR-TEVA-2017-FR-841742

PATIENT
  Age: 32 Year
  Sex: Male

DRUGS (57)
  1. DEXTROPROPOXYPHENE, PARACETAMOL [Suspect]
     Active Substance: ACETAMINOPHEN\PROPOXYPHENE
     Indication: PAIN
     Route: 065
     Dates: start: 20100606
  2. AMITRIPTYLINE HYDROCHLORIDE. [Suspect]
     Active Substance: AMITRIPTYLINE HYDROCHLORIDE
     Indication: NECK PAIN
     Dosage: 5-8 DROPS
     Route: 065
     Dates: start: 20110219
  3. DOLIPRANE [Concomitant]
     Active Substance: ACETAMINOPHEN
     Dosage: 1 DOSAGE FORMS DAILY;
     Route: 048
     Dates: start: 20101213
  4. STRESAM [Concomitant]
     Active Substance: ETIFOXINE
     Route: 048
     Dates: start: 20120327
  5. PARACETAMOL [Concomitant]
     Active Substance: ACETAMINOPHEN
     Dosage: 1 DOSAGE FORMS DAILY;
     Dates: start: 20110201
  6. RIVOTRIL [Suspect]
     Active Substance: CLONAZEPAM
     Route: 065
     Dates: start: 20110303, end: 20110327
  7. MILNACIPRAN [Suspect]
     Active Substance: MILNACIPRAN
     Indication: PANIC ATTACK
     Dosage: 2 DOSAGE FORMS DAILY;
     Route: 065
     Dates: start: 20110322
  8. CLONAZEPAM. [Suspect]
     Active Substance: CLONAZEPAM
     Dosage: 5 - 8 DROPS
     Route: 065
     Dates: start: 20110219, end: 20110302
  9. CLONAZEPAM. [Suspect]
     Active Substance: CLONAZEPAM
     Route: 065
     Dates: start: 20110510
  10. DOLIPRANE [Concomitant]
     Active Substance: ACETAMINOPHEN
     Dosage: 1 DOSAGE FORMS DAILY;
     Route: 048
     Dates: start: 20110328
  11. MIOREL [Concomitant]
     Dosage: 1 DOSAGE FORMS DAILY;
     Route: 048
     Dates: start: 20100606
  12. MIOREL [Concomitant]
     Dosage: 1 DOSAGE FORMS DAILY;
     Route: 048
     Dates: start: 20101210
  13. VALIUM [Concomitant]
     Active Substance: DIAZEPAM
     Route: 051
     Dates: start: 20101115, end: 20101115
  14. TANGANIL [Concomitant]
     Active Substance: ACETYLLEUCINE
     Dosage: 3 DOSAGE FORMS DAILY;
     Route: 048
     Dates: start: 20110303
  15. COVATINE [Concomitant]
     Active Substance: CAPTODIAME HYDROCHLORIDE
     Route: 048
     Dates: start: 20120620, end: 201207
  16. RIVOTRIL [Suspect]
     Active Substance: CLONAZEPAM
     Route: 065
     Dates: start: 20110510
  17. TEMERIT [Suspect]
     Active Substance: NEBIVOLOL
     Dosage: 2 DOSAGE FORMS DAILY;
     Route: 048
     Dates: start: 20110510, end: 201207
  18. DOLIPRANE [Concomitant]
     Active Substance: ACETAMINOPHEN
     Dosage: 1 DOSAGE FORMS DAILY;
     Route: 048
     Dates: start: 20110201
  19. UVEDOSE [Concomitant]
     Active Substance: CHOLECALCIFEROL
     Dosage: 1000000 IU
     Route: 065
     Dates: start: 20110219
  20. MIOREL [Concomitant]
     Dosage: 1 DOSAGE FORMS DAILY;
     Route: 048
     Dates: start: 20101213
  21. MIOREL [Concomitant]
     Dosage: 1 DOSAGE FORMS DAILY;
     Route: 048
     Dates: start: 20110201
  22. IBUPROFEN. [Concomitant]
     Active Substance: IBUPROFEN
     Dates: start: 20101213
  23. CAFEDRINE HYDROCHLORIDE/THEODRENALINE HYDROCHLORIDE [Concomitant]
     Dosage: 2 DOSAGE FORMS DAILY;
     Dates: start: 20101127
  24. TETRAZEPAM [Suspect]
     Active Substance: TETRAZEPAM
     Route: 048
     Dates: start: 20110705
  25. HYDROXYZINE [Suspect]
     Active Substance: HYDROXYZINE HYDROCHLORIDE
     Route: 065
     Dates: start: 20120131
  26. DI-ANTALVIC [Suspect]
     Active Substance: ACETAMINOPHEN\PROPOXYPHENE HYDROCHLORIDE
     Indication: PAIN
     Route: 048
     Dates: start: 20100606
  27. NUREFLEX [Concomitant]
     Active Substance: IBUPROFEN
     Route: 048
     Dates: start: 20101213
  28. CAPTODIAME HYDROCHLORIDE [Concomitant]
     Active Substance: CAPTODIAME HYDROCHLORIDE
     Dates: start: 20120620
  29. TETRAZEPAM [Suspect]
     Active Substance: TETRAZEPAM
     Route: 048
     Dates: start: 20110228
  30. TETRAZEPAM [Suspect]
     Active Substance: TETRAZEPAM
     Route: 048
     Dates: start: 20110726
  31. RIVOTRIL [Suspect]
     Active Substance: CLONAZEPAM
     Dosage: 5-8 DROPS
     Route: 065
     Dates: start: 20110219, end: 20110302
  32. TEMERIT [Suspect]
     Active Substance: NEBIVOLOL
     Dosage: 2 DOSAGE FORMS DAILY;
     Route: 048
     Dates: start: 20101115, end: 20110509
  33. IXEL [Suspect]
     Active Substance: MILNACIPRAN HYDROCHLORIDE
     Indication: PANIC ATTACK
     Dosage: 2 DOSAGE FORMS DAILY;
     Route: 048
     Dates: start: 20110322
  34. PARACETAMOL [Concomitant]
     Active Substance: ACETAMINOPHEN
     Dosage: 1 DOSAGE FORMS DAILY;
     Dates: start: 20101213
  35. COLECALCIFEROL [Concomitant]
     Active Substance: CHOLECALCIFEROL
     Dosage: 1000000 IU
     Dates: start: 20110219
  36. PAROXETINE. [Suspect]
     Active Substance: PAROXETINE
     Dosage: 2 TO 3 WEEKS
     Route: 048
     Dates: start: 20110201
  37. SEROPRAM (CITALOPRAM HYDROBROMIDE) [Suspect]
     Active Substance: CITALOPRAM HYDROBROMIDE
     Route: 048
     Dates: start: 20110318
  38. LAROXYL [Suspect]
     Active Substance: AMITRIPTYLINE HYDROCHLORIDE
     Indication: NECK PAIN
     Dosage: 5-8 DROPS
     Route: 065
     Dates: start: 20110219
  39. PRAXINOR [Concomitant]
     Dosage: 2 DOSAGE FORMS DAILY;
     Route: 048
     Dates: start: 20101127
  40. THIOCOLCHICOSIDE [Concomitant]
     Active Substance: THIOCOLCHICOSIDE
     Dosage: 1 DOSAGE FORMS DAILY;
     Dates: start: 20110201
  41. ETIFOXINE [Concomitant]
     Active Substance: ETIFOXINE
  42. ATARAX [Suspect]
     Active Substance: HYDROXYZINE HYDROCHLORIDE
     Route: 048
     Dates: start: 20120131, end: 201207
  43. CLONAZEPAM. [Suspect]
     Active Substance: CLONAZEPAM
     Indication: NECK PAIN
     Dosage: 5-4 DROPS
     Route: 065
     Dates: start: 20110328
  44. CLONAZEPAM. [Suspect]
     Active Substance: CLONAZEPAM
     Route: 065
     Dates: start: 20110303, end: 20110327
  45. PARACETAMOL [Concomitant]
     Active Substance: ACETAMINOPHEN
     Dosage: 1 DOSAGE FORMS DAILY;
     Dates: start: 20110328
  46. THIOCOLCHICOSIDE [Concomitant]
     Active Substance: THIOCOLCHICOSIDE
     Dosage: 1 DOSAGE FORMS DAILY;
     Dates: start: 20101210
  47. CITALOPRAM [Suspect]
     Active Substance: CITALOPRAM HYDROBROMIDE
     Route: 065
     Dates: start: 20110318
  48. RIVOTRIL [Suspect]
     Active Substance: CLONAZEPAM
     Indication: NECK PAIN
     Route: 065
     Dates: start: 20110718, end: 201110
  49. RIVOTRIL [Suspect]
     Active Substance: CLONAZEPAM
     Dosage: 5-8 DROPS
     Route: 065
     Dates: start: 20110328
  50. TEMERIT [Suspect]
     Active Substance: NEBIVOLOL
     Indication: CARDIAC DISORDER
     Dosage: 2 DOSAGE FORMS DAILY;
     Route: 048
     Dates: start: 20110718, end: 201207
  51. CLONAZEPAM. [Suspect]
     Active Substance: CLONAZEPAM
     Route: 065
     Dates: start: 20110718
  52. SOLUPRED [Concomitant]
     Route: 048
     Dates: start: 20110726
  53. DIAZEPAM. [Concomitant]
     Active Substance: DIAZEPAM
     Route: 065
     Dates: start: 20101115, end: 20101115
  54. THIOCOLCHICOSIDE [Concomitant]
     Active Substance: THIOCOLCHICOSIDE
     Dosage: 1 DOSAGE FORMS DAILY;
     Dates: start: 20101213
  55. THIOCOLCHICOSIDE [Concomitant]
     Active Substance: THIOCOLCHICOSIDE
     Dosage: 1 DOSAGE FORMS DAILY;
     Dates: start: 20100606
  56. PREDNISOLONE. [Concomitant]
     Active Substance: PREDNISOLONE
     Dates: start: 20110726
  57. ETHANOLAMINE ACETYLLEUCINATE [Concomitant]
     Dosage: 3 DOSAGE FORMS DAILY;
     Dates: start: 20110303

REACTIONS (24)
  - Personal relationship issue [Recovered/Resolved]
  - Anxiety [Recovered/Resolved]
  - Agoraphobia [Recovered/Resolved]
  - Neurosis [Recovered/Resolved]
  - Hypoacusis [Recovered/Resolved]
  - Visual impairment [Recovered/Resolved]
  - Hypertonia [Unknown]
  - Memory impairment [Recovered/Resolved]
  - Musculoskeletal pain [Unknown]
  - Panic attack [Recovered/Resolved]
  - Suicidal ideation [Recovered/Resolved]
  - Pain in extremity [Unknown]
  - Psychotic disorder [Recovered/Resolved]
  - Dyspnoea [Unknown]
  - Tachycardia [Recovered/Resolved]
  - Malaise [Recovered/Resolved]
  - Hallucination, auditory [Recovered/Resolved]
  - Asthenia [Unknown]
  - Tinnitus [Recovered/Resolved]
  - Post-traumatic stress disorder [Recovered/Resolved]
  - Drug intolerance [Recovering/Resolving]
  - Erectile dysfunction [Recovering/Resolving]
  - Intervertebral disc disorder [Unknown]
  - Adverse event [Unknown]

NARRATIVE: CASE EVENT DATE: 2010
